FAERS Safety Report 18794127 (Version 1)
Quarter: 2021Q1

REPORT INFORMATION
  Report Type: Spontaneous
  Country: US (occurrence: US)
  Receive Date: 20210127
  Receipt Date: 20210127
  Transmission Date: 20210419
  Serious: No
  Sender: FDA-Public Use
  Company Number: None

PATIENT
  Age: 53 Year
  Sex: Female
  Weight: 91.35 kg

DRUGS (13)
  1. STEROID [Concomitant]
     Active Substance: UNSPECIFIED INGREDIENT
  2. MAGNESIUM [Concomitant]
     Active Substance: MAGNESIUM
  3. BENZONATATE. [Concomitant]
     Active Substance: BENZONATATE
  4. VITAMIN C [Concomitant]
     Active Substance: ASCORBIC ACID
  5. BAMLANIVIMAB INFUSION [Suspect]
     Active Substance: BAMLANIVIMAB
     Indication: COVID-19
     Dosage: ?          OTHER ROUTE:INFUSION?
     Dates: start: 20210126, end: 20210126
  6. CENTRUM WOMEN OVER 50 MULTIVITAMIN/MINERAL SUPPLEMENT [Concomitant]
  7. ALEVE [Concomitant]
     Active Substance: NAPROXEN SODIUM
  8. VITAMIN D [Concomitant]
     Active Substance: VITAMIN D NOS
  9. ZINC SULFATE. [Concomitant]
     Active Substance: ZINC SULFATE
  10. ALLEGRA [Concomitant]
     Active Substance: FEXOFENADINE HYDROCHLORIDE
  11. CPAP [Concomitant]
     Active Substance: DEVICE
  12. ATORVASTATIN [Concomitant]
     Active Substance: ATORVASTATIN
  13. THIAMINE. [Concomitant]
     Active Substance: THIAMINE

REACTIONS (3)
  - Tinnitus [None]
  - Insomnia [None]
  - Headache [None]

NARRATIVE: CASE EVENT DATE: 20210126
